FAERS Safety Report 9479026 (Version 1)
Quarter: 2013Q3

REPORT INFORMATION
  Report Type: Spontaneous
  Country: US (occurrence: US)
  Receive Date: 20130827
  Receipt Date: 20130827
  Transmission Date: 20140515
  Serious: No
  Sender: FDA-Public Use
  Company Number: US-BAYER-2013-103557

PATIENT
  Age: 35 Year
  Sex: 0

DRUGS (8)
  1. ALEVE CAPLET [Suspect]
     Indication: PAIN
  2. MOTRIN [Concomitant]
  3. TRAMADOL [Concomitant]
  4. DILAUDID [Concomitant]
  5. PREDNISONE [Concomitant]
  6. CODEINE [Concomitant]
  7. VICODIN [Concomitant]
  8. PERCOCET [Concomitant]

REACTIONS (1)
  - Drug ineffective [None]
